FAERS Safety Report 16720013 (Version 1)
Quarter: 2019Q3

REPORT INFORMATION
  Report Type: Report from Study
  Country: BR (occurrence: BR)
  Receive Date: 20190820
  Receipt Date: 20190820
  Transmission Date: 20191005
  Serious: Yes (Death, Hospitalization, Other)
  Sender: FDA-Public Use
  Company Number: BR-BAYER-2017-008799

PATIENT
  Age: 69 Year
  Sex: Male

DRUGS (4)
  1. NEXAVAR [Suspect]
     Active Substance: SORAFENIB
     Indication: HEPATOCELLULAR CARCINOMA
     Dosage: 800 MG, QD
     Route: 048
     Dates: start: 20160101
  2. ZOLPIDEM [Concomitant]
     Active Substance: ZOLPIDEM TARTRATE
     Indication: SLEEP DISORDER
     Dosage: 10 MG, QD
     Route: 048
     Dates: start: 2016
  3. PANTOPRAZOLE [Concomitant]
     Active Substance: PANTOPRAZOLE
     Indication: GASTROINTESTINAL DISORDER PROPHYLAXIS
     Dosage: 1 DF, OM
     Route: 048
     Dates: start: 2014
  4. DIPYRONE [Concomitant]
     Active Substance: DIPYRONE
     Indication: EXOSTOSIS

REACTIONS (14)
  - Abdominal infection [Recovering/Resolving]
  - Hepatic infection [None]
  - Pain in extremity [Not Recovered/Not Resolved]
  - Dry skin [Recovering/Resolving]
  - Skin wound [Recovered/Resolved]
  - Pain in extremity [Recovered/Resolved]
  - Skin exfoliation [Recovering/Resolving]
  - Blister [Recovered/Resolved]
  - Decreased appetite [Not Recovered/Not Resolved]
  - Discoloured vomit [Not Recovered/Not Resolved]
  - Hepatic infection [None]
  - Chest pain [Recovered/Resolved]
  - Death [Fatal]
  - Diarrhoea [Not Recovered/Not Resolved]

NARRATIVE: CASE EVENT DATE: 201601
